FAERS Safety Report 5084309-7 (Version None)
Quarter: 2006Q3

REPORT INFORMATION
  Report Type: 
  Country: None (occurrence: None)
  Receive Date: 20060817
  Receipt Date: 20060817
  Transmission Date: 20061208
  Serious: No
  Sender: FDA-Public Use
  Company Number: None

PATIENT
  Age: 82 Year
  Sex: Female
  Weight: 53.5244 kg

DRUGS (1)
  1. DOXIL [Suspect]
     Indication: BREAST CANCER
     Dosage: 60MG  ONCE  IV
     Route: 042
     Dates: start: 20060809

REACTIONS (4)
  - CHEST PAIN [None]
  - DYSPNOEA [None]
  - INFUSION RELATED REACTION [None]
  - SKIN DISCOLOURATION [None]
